FAERS Safety Report 6344820-5 (Version None)
Quarter: 2009Q3

REPORT INFORMATION
  Report Type: 
  Country: None (occurrence: None)
  Receive Date: 20090904
  Receipt Date: 20090824
  Transmission Date: 20100115
  Serious: Yes (Other)
  Sender: FDA-Public Use
  Company Number: 86105

PATIENT
  Age: 74 Year
  Sex: Female

DRUGS (1)
  1. ACETYLCYSTEINE SOLUTION [Suspect]
     Dosage: 30MG ORALLY DILUTED IN 1 OZ GINGER ALE
     Dates: start: 20090101

REACTIONS (4)
  - INCORRECT DOSE ADMINISTERED [None]
  - MEDICATION ERROR [None]
  - NAUSEA [None]
  - VOMITING [None]
